FAERS Safety Report 26132906 (Version 1)
Quarter: 2025Q4

REPORT INFORMATION
  Report Type: Spontaneous
  Country: CN (occurrence: CN)
  Receive Date: 20251209
  Receipt Date: 20251209
  Transmission Date: 20260118
  Serious: Yes (Other)
  Sender: AMGEN
  Company Number: CN-AMGEN-CHNSP2025241223

PATIENT
  Age: 69 Year
  Sex: Male
  Weight: 82.4 kg

DRUGS (3)
  1. CARFILZOMIB [Suspect]
     Active Substance: CARFILZOMIB
     Indication: Plasma cell myeloma
     Dosage: 50 MILLIGRAM, QD
     Route: 040
     Dates: start: 20251115, end: 20251116
  2. DEXTROSE [Concomitant]
     Active Substance: DEXTROSE MONOHYDRATE
     Indication: Product used for unknown indication
     Dosage: 100 MILLILITER
     Route: 040
     Dates: start: 20251115, end: 20251116
  3. STERILE WATER [Concomitant]
     Active Substance: WATER
     Indication: Product used for unknown indication
     Dosage: UNK
     Dates: start: 20251115, end: 20251116

REACTIONS (1)
  - Myelosuppression [Unknown]

NARRATIVE: CASE EVENT DATE: 20251121
